FAERS Safety Report 5108146-X (Version None)
Quarter: 2006Q3

REPORT INFORMATION
  Report Type: 
  Country: None (occurrence: None)
  Receive Date: 20060919
  Receipt Date: 20060912
  Transmission Date: 20061208
  Serious: Yes (Hospitalization)
  Sender: FDA-Public Use
  Company Number: FR-GLAXOSMITHKLINE-B0438427A

PATIENT
  Age: 46 Year
  Sex: Male
  Weight: 60 kg

DRUGS (2)
  1. AUGMENTIN [Suspect]
     Indication: ACUTE SINUSITIS
     Route: 048
     Dates: start: 20060713, end: 20060723
  2. SUBUTEX [Suspect]
     Dosage: 12MG PER DAY
     Route: 048
     Dates: start: 20060715, end: 20060801

REACTIONS (10)
  - ALANINE AMINOTRANSFERASE INCREASED [None]
  - ASPARTATE AMINOTRANSFERASE INCREASED [None]
  - CHOLECYSTITIS [None]
  - CHOLESTASIS [None]
  - GENERAL PHYSICAL HEALTH DETERIORATION [None]
  - HEPATIC FIBROSIS [None]
  - HEPATOMEGALY [None]
  - HYPERBILIRUBINAEMIA [None]
  - JAUNDICE [None]
  - WEIGHT DECREASED [None]
